FAERS Safety Report 7552215-1 (Version None)
Quarter: 2011Q2

REPORT INFORMATION
  Report Type: 
  Country: None (occurrence: None)
  Receive Date: 20110616
  Receipt Date: 20110608
  Transmission Date: 20111010
  Serious: Yes (Hospitalization, Other)
  Sender: FDA-Public Use
  Company Number: US-MERCK-0906USA05129

PATIENT
  Age: 68 Year
  Sex: Female

DRUGS (2)
  1. PROZAC [Concomitant]
     Route: 065
     Dates: start: 19900101
  2. FOSAMAX [Suspect]
     Indication: OSTEOPOROSIS
     Route: 048
     Dates: start: 20041030, end: 20070103

REACTIONS (11)
  - ARTHROPATHY [None]
  - EYE DISORDER [None]
  - NERVOUSNESS [None]
  - HYPERTENSION [None]
  - DENTAL PLAQUE [None]
  - DIVERTICULITIS [None]
  - OSTEONECROSIS OF JAW [None]
  - TOOTH DISORDER [None]
  - GINGIVAL BLEEDING [None]
  - GINGIVITIS [None]
  - BLOOD CHOLESTEROL INCREASED [None]
